FAERS Safety Report 12139469 (Version 2)
Quarter: 2016Q2

REPORT INFORMATION
  Report Type: Report from Study
  Country: CA (occurrence: CA)
  Receive Date: 20160303
  Receipt Date: 20160510
  Transmission Date: 20160815
  Serious: Yes (Other)
  Sender: FDA-Public Use
  Company Number: CA-ROCHE-1162790

PATIENT
  Age: 43 Year
  Sex: Female
  Weight: 65 kg

DRUGS (6)
  1. ACTEMRA [Suspect]
     Active Substance: TOCILIZUMAB
     Indication: RHEUMATOID ARTHRITIS
     Route: 042
     Dates: start: 20110613
  2. ACTEMRA [Suspect]
     Active Substance: TOCILIZUMAB
     Route: 042
     Dates: start: 20130821
  3. ACTEMRA [Suspect]
     Active Substance: TOCILIZUMAB
     Route: 042
     Dates: start: 20150707
  4. METHOTREXATE [Concomitant]
     Active Substance: METHOTREXATE
  5. ACTEMRA [Suspect]
     Active Substance: TOCILIZUMAB
     Route: 042
     Dates: start: 20150427
  6. FOLIC ACID. [Concomitant]
     Active Substance: FOLIC ACID

REACTIONS (12)
  - Nasopharyngitis [Recovering/Resolving]
  - Menstruation irregular [Unknown]
  - Weight increased [Unknown]
  - Blood pressure increased [Unknown]
  - Infusion related reaction [Unknown]
  - Amenorrhoea [Not Recovered/Not Resolved]
  - Burn oral cavity [Recovered/Resolved]
  - Anxiety [Unknown]
  - Dehydration [Unknown]
  - Gastrooesophageal reflux disease [Not Recovered/Not Resolved]
  - Lower respiratory tract infection [Recovered/Resolved]
  - Sensitivity of teeth [Recovered/Resolved]

NARRATIVE: CASE EVENT DATE: 20121119
